FAERS Safety Report 15029591 (Version 1)
Quarter: 2018Q2

REPORT INFORMATION
  Report Type: Other
  Country: IT (occurrence: IT)
  Receive Date: 20180619
  Receipt Date: 20180619
  Transmission Date: 20180711
  Serious: Yes (Hospitalization)
  Sender: FDA-Public Use
  Company Number: IT-NAPPMUNDI-GBR-2018-0056684

PATIENT
  Age: 83 Year
  Sex: Female

DRUGS (7)
  1. TRIATEC                            /00885601/ [Concomitant]
     Active Substance: RAMIPRIL
     Dosage: UNK
  2. FOSTER                             /00500401/ [Concomitant]
     Active Substance: PIROXICAM
     Dosage: UNK
  3. TARGIN [Suspect]
     Active Substance: NALOXONE HYDROCHLORIDE\OXYCODONE HYDROCHLORIDE
     Indication: SPINAL PAIN
     Dosage: 2 DF, DAILY
     Route: 048
     Dates: start: 20171114, end: 20171116
  4. SIVASTIN [Concomitant]
     Active Substance: SIMVASTATIN
     Dosage: UNK
  5. LASIX [Concomitant]
     Active Substance: FUROSEMIDE
     Dosage: UNK
  6. CARDURA [Concomitant]
     Active Substance: DOXAZOSIN MESYLATE
     Dosage: UNK
  7. ALLOPURINOL. [Concomitant]
     Active Substance: ALLOPURINOL
     Dosage: UNK

REACTIONS (3)
  - Sopor [Unknown]
  - Dyspnoea [Unknown]
  - Coma [Unknown]
